FAERS Safety Report 9682067 (Version 2)
Quarter: 2013Q4

REPORT INFORMATION
  Report Type: Spontaneous
  Country: US (occurrence: US)
  Receive Date: 20131111
  Receipt Date: 20131217
  Transmission Date: 20140711
  Serious: Yes (Other)
  Sender: FDA-Public Use
  Company Number: US-BAXTER-2013BAX044227

PATIENT
  Sex: Male

DRUGS (2)
  1. FEIBA NF [Suspect]
     Indication: FACTOR VIII INHIBITION
  2. FEIBA NF [Suspect]
     Indication: PROPHYLAXIS

REACTIONS (1)
  - Haemorrhage [Unknown]
